FAERS Safety Report 18998658 (Version 3)
Quarter: 2021Q3

REPORT INFORMATION
  Report Type: Report from Study
  Country: US (occurrence: US)
  Receive Date: 20210311
  Receipt Date: 20210915
  Transmission Date: 20211014
  Serious: No
  Sender: FDA-Public Use
  Company Number: NVSC2021US056895

PATIENT
  Sex: Female

DRUGS (2)
  1. ENTRESTO [Suspect]
     Active Substance: SACUBITRIL\VALSARTAN
     Dosage: 1 DF, BID (49.51 MG)
     Route: 048
     Dates: start: 20210204
  2. ENTRESTO [Suspect]
     Active Substance: SACUBITRIL\VALSARTAN
     Indication: CARDIAC FAILURE
     Dosage: 1 DF, BID (49.51 MG)
     Route: 048
     Dates: start: 202102

REACTIONS (8)
  - Weight increased [Unknown]
  - Feeling abnormal [Unknown]
  - Peripheral swelling [Unknown]
  - Dysphonia [Unknown]
  - Nasopharyngitis [Unknown]
  - Joint swelling [Unknown]
  - Blood glucose increased [Unknown]
  - Dyskinesia [Unknown]
